FAERS Safety Report 10785723 (Version 3)
Quarter: 2015Q2

REPORT INFORMATION
  Report Type: Spontaneous
  Country: US (occurrence: None)
  Receive Date: 20150209
  Receipt Date: 20150625
  Transmission Date: 20150821
  Serious: Yes (Other)
  Sender: FDA-Public Use
  Company Number: 2014ILOUS001314

PATIENT
  Age: 23 Year
  Sex: Male

DRUGS (7)
  1. FANAPT [Suspect]
     Active Substance: ILOPERIDONE
     Indication: INTERMITTENT EXPLOSIVE DISORDER
     Route: 048
     Dates: start: 20140724, end: 20150127
  2. FOCALIN XR [Suspect]
     Active Substance: DEXMETHYLPHENIDATE HYDROCHLORIDE
     Indication: ATTENTION DEFICIT/HYPERACTIVITY DISORDER
     Dates: start: 201509
  3. ALLEGRA (FEXOFENADINE HYDROCHLORIDE) [Concomitant]
  4. DEPAKOTE [Concomitant]
     Active Substance: DIVALPROEX SODIUM
  5. RITALIN (METHYLPHENIDATE HYDROCHLORIDE) [Concomitant]
     Active Substance: METHYLPHENIDATE HYDROCHLORIDE
  6. FOCALIN XR [Suspect]
     Active Substance: DEXMETHYLPHENIDATE HYDROCHLORIDE
     Dates: start: 201509
  7. HALDOL (HALOPERIDOL) [Concomitant]

REACTIONS (9)
  - Drug tolerance [None]
  - Migraine [None]
  - Economic problem [None]
  - Erection increased [None]
  - Drug dose omission [None]
  - Priapism [None]
  - Attention deficit/hyperactivity disorder [None]
  - Drug ineffective [None]
  - Off label use [None]

NARRATIVE: CASE EVENT DATE: 20140724
